FAERS Safety Report 6549216-9 (Version None)
Quarter: 2010Q1

REPORT INFORMATION
  Report Type: 
  Country: None (occurrence: None)
  Receive Date: 20100125
  Receipt Date: 20100119
  Transmission Date: 20100710
  Serious: Yes (Death, Other)
  Sender: FDA-Public Use
  Company Number: BR-BRISTOL-MYERS SQUIBB COMPANY-14896211

PATIENT
  Age: 90 Year
  Sex: Female

DRUGS (2)
  1. SPRYCEL [Suspect]
     Indication: CHRONIC MYELOID LEUKAEMIA
     Dosage: STARTED ON END OF NOV
     Route: 048
     Dates: start: 20091101
  2. IMATINIB MESILATE [Suspect]

REACTIONS (2)
  - PANCREATITIS HAEMORRHAGIC [None]
  - PLEURAL EFFUSION [None]
